FAERS Safety Report 10021650 (Version 3)
Quarter: 2014Q2

REPORT INFORMATION
  Report Type: Spontaneous
  Country: US (occurrence: US)
  Receive Date: 20140319
  Receipt Date: 20140411
  Transmission Date: 20141212
  Serious: Yes (Hospitalization, Other)
  Sender: FDA-Public Use
  Company Number: US-BAXTER-2014BAX013690

PATIENT
  Age: 67 Year
  Sex: Female
  Weight: 57.73 kg

DRUGS (8)
  1. DIANEAL LOW CALCIUM [Suspect]
     Indication: RENAL FAILURE CHRONIC
     Route: 033
     Dates: start: 201201, end: 201403
  2. DIANEAL LOW CALCIUM [Suspect]
     Indication: PERITONEAL DIALYSIS
     Route: 033
     Dates: start: 201201, end: 201403
  3. DIANEAL LOW CALCIUM [Suspect]
     Route: 033
  4. DIANEAL LOW CALCIUM [Suspect]
     Route: 033
  5. DIANEAL LOW CALCIUM [Suspect]
     Indication: RENAL FAILURE CHRONIC
     Route: 033
     Dates: start: 201201, end: 201403
  6. DIANEAL LOW CALCIUM [Suspect]
     Indication: PERITONEAL DIALYSIS
     Route: 033
     Dates: start: 201201, end: 201403
  7. DIANEAL LOW CALCIUM [Suspect]
     Route: 033
  8. DIANEAL LOW CALCIUM [Suspect]
     Route: 033

REACTIONS (4)
  - Umbilical hernia [Recovered/Resolved]
  - Incisional hernia [Recovering/Resolving]
  - Condition aggravated [Recovering/Resolving]
  - Cough [Unknown]
